FAERS Safety Report 10206107 (Version 1)
Quarter: 2014Q2

REPORT INFORMATION
  Report Type: Spontaneous
  Country: US (occurrence: US)
  Receive Date: 20140530
  Receipt Date: 20140530
  Transmission Date: 20141212
  Serious: No
  Sender: FDA-Public Use
  Company Number: US-PFIZER INC-2014144951

PATIENT
  Age: 63 Year
  Sex: Female

DRUGS (11)
  1. PANTOPRAZOLE [Suspect]
     Dosage: UNK
  2. GILENYA [Suspect]
     Indication: MULTIPLE SCLEROSIS
     Dosage: 0.5 MG, 1X/DAY
     Route: 048
     Dates: start: 201307
  3. ALENDRONATE [Suspect]
     Indication: OSTEOPOROSIS
     Dosage: 70 MG, UNK
  4. AMITRIPTYLINE [Suspect]
     Dosage: UNK
     Route: 048
  5. VITAMIN D [Suspect]
     Dosage: UNK
  6. CITRACAL [Suspect]
     Dosage: UNK
  7. LITHIUM [Suspect]
     Dosage: UNK
  8. FISH OIL [Suspect]
     Dosage: UNK
  9. OSTEO BI-FLEX [Suspect]
     Dosage: UNK
  10. LECITHIN [Suspect]
     Dosage: UNK
  11. PROTONIX [Concomitant]
     Indication: GASTROINTESTINAL DISORDER
     Dosage: UNK

REACTIONS (2)
  - Somnolence [Unknown]
  - Abnormal dreams [Unknown]
